FAERS Safety Report 5029960-5 (Version None)
Quarter: 2006Q2

REPORT INFORMATION
  Report Type: 
  Country: None (occurrence: None)
  Receive Date: 20060620
  Receipt Date: 20060405
  Transmission Date: 20061013
  Serious: Yes (Hospitalization)
  Sender: FDA-Public Use
  Company Number: AU-MERCK-0604AUS00008

PATIENT
  Age: 78 Year
  Sex: Female

DRUGS (4)
  1. FOSAMAX [Suspect]
     Indication: OSTEOPOROSIS
     Route: 048
     Dates: start: 20020101
  2. CALCIUM (UNSPECIFIED) AND VITAMIN D (UNSPECIFIED) [Concomitant]
     Route: 065
  3. ASCORBIC ACID [Concomitant]
     Route: 065
  4. ASCORBIC ACID AND VITAMIN B COMPLEX [Concomitant]
     Route: 048

REACTIONS (2)
  - DIVERTICULITIS [None]
  - PERITONITIS [None]
